FAERS Safety Report 25074961 (Version 3)
Quarter: 2025Q2

REPORT INFORMATION
  Report Type: Report from Study
  Country: CA (occurrence: CA)
  Receive Date: 20250313
  Receipt Date: 20250429
  Transmission Date: 20250717
  Serious: Yes (Other)
  Sender: TAKEDA
  Company Number: CA-TAKEDA-2024TUS118184

PATIENT
  Sex: Male

DRUGS (7)
  1. VEDOLIZUMAB [Suspect]
     Active Substance: VEDOLIZUMAB
     Indication: Colitis ulcerative
  2. VEDOLIZUMAB [Suspect]
     Active Substance: VEDOLIZUMAB
  3. VEDOLIZUMAB [Suspect]
     Active Substance: VEDOLIZUMAB
  4. INFLECTRA [Concomitant]
     Active Substance: INFLIXIMAB-DYYB
  5. Cortiment [Concomitant]
  6. PREDNISONE [Concomitant]
     Active Substance: PREDNISONE
  7. TYLENOL [Concomitant]
     Active Substance: ACETAMINOPHEN

REACTIONS (5)
  - Haematochezia [Unknown]
  - Diarrhoea [Unknown]
  - Mucous stools [Unknown]
  - Abdominal pain [Unknown]
  - Abdominal distension [Unknown]
